FAERS Safety Report 8382966-0 (Version None)
Quarter: 2012Q2

REPORT INFORMATION
  Report Type: 
  Country: None (occurrence: None)
  Receive Date: 20120524
  Receipt Date: 20120521
  Transmission Date: 20120825
  Serious: No
  Sender: FDA-Public Use
  Company Number: US-BAYER-2012-050933

PATIENT
  Age: 72 Year
  Sex: Male

DRUGS (1)
  1. STAXYN [Suspect]
     Indication: ERECTILE DYSFUNCTION
     Dosage: 10 MG, ONCE PER WEEK
     Route: 048
     Dates: start: 20110501

REACTIONS (2)
  - DIZZINESS [None]
  - FLUSHING [None]
